FAERS Safety Report 21768686 (Version 1)
Quarter: 2022Q4

REPORT INFORMATION
  Report Type: Spontaneous
  Country: US (occurrence: None)
  Receive Date: 20221222
  Receipt Date: 20221222
  Transmission Date: 20230112
  Serious: Yes (Hospitalization)
  Sender: FDA-Public Use
  Company Number: None

PATIENT
  Age: 83 Year
  Sex: Female
  Weight: 59.33 kg

DRUGS (12)
  1. CAPECITABINE [Suspect]
     Active Substance: CAPECITABINE
     Indication: Gastric cancer
     Dosage: 150MG TWICE DAILY ORAL?
     Route: 048
     Dates: start: 202211, end: 20221221
  2. CAPECITABINE [Suspect]
     Active Substance: CAPECITABINE
     Indication: Gastric cancer
     Dosage: 1000MG TWICE DAILY ORAL
     Route: 048
     Dates: start: 202211, end: 20221221
  3. AZELASTINE [Concomitant]
     Active Substance: AZELASTINE
  4. FUROSEMIDE [Concomitant]
     Active Substance: FUROSEMIDE
  5. IMODUM AD [Concomitant]
  6. PRATROPIUM [Concomitant]
  7. LEVOTHYROXINE [Concomitant]
  8. MIRALAX [Concomitant]
     Active Substance: POLYETHYLENE GLYCOL 3350
  9. ONDANSETRON [Concomitant]
     Active Substance: ONDANSETRON
  10. PANTOPRAZOLE [Concomitant]
     Active Substance: PANTOPRAZOLE
  11. POTASSIUM CHLORIDE [Concomitant]
     Active Substance: POTASSIUM CHLORIDE
  12. PROCHLORPERAZINE [Concomitant]
     Active Substance: PROCHLORPERAZINE

REACTIONS (1)
  - Gastrointestinal haemorrhage [None]
